FAERS Safety Report 21721027 (Version 1)
Quarter: 2022Q4

REPORT INFORMATION
  Report Type: Spontaneous
  Country: IL (occurrence: IL)
  Receive Date: 20221213
  Receipt Date: 20221213
  Transmission Date: 20230112
  Serious: Yes (Hospitalization, Other)
  Sender: FDA-Public Use
  Company Number: IL-002147023-NVSC2022IL284025

PATIENT
  Age: 67 Year
  Sex: Male
  Weight: 86 kg

DRUGS (6)
  1. METHOTREXATE [Interacting]
     Active Substance: METHOTREXATE
     Indication: Diffuse large B-cell lymphoma
     Dosage: 6900 MG, 3.5G/M2 DURING 3 HOUR
     Route: 042
  2. METHOTREXATE [Interacting]
     Active Substance: METHOTREXATE
     Dosage: UNK, 2.0 G/M2
     Route: 042
  3. METHOTREXATE [Interacting]
     Active Substance: METHOTREXATE
     Dosage: UNK, 2.5 G/M2
     Route: 042
  4. CIPROFLOXACIN [Interacting]
     Active Substance: CIPROFLOXACIN
     Indication: Product used for unknown indication
     Dosage: UNK
     Route: 065
  5. FUROSEMIDE [Interacting]
     Active Substance: FUROSEMIDE
     Indication: Product used for unknown indication
     Dosage: UNK
     Route: 065
  6. OMEPRAZOLE [Interacting]
     Active Substance: OMEPRAZOLE
     Indication: Product used for unknown indication
     Dosage: UNK
     Route: 065

REACTIONS (4)
  - Acute kidney injury [Recovered/Resolved]
  - Thrombocytopenia [Unknown]
  - Drug level increased [Recovering/Resolving]
  - Drug interaction [Unknown]
